FAERS Safety Report 15575381 (Version 2)
Quarter: 2018Q4

REPORT INFORMATION
  Report Type: Spontaneous
  Country: MX (occurrence: MX)
  Receive Date: 20181101
  Receipt Date: 20181210
  Transmission Date: 20190205
  Serious: Yes (Other)
  Sender: FDA-Public Use
  Company Number: MX-GLAXOSMITHKLINE-MX2018GSK196260

PATIENT
  Sex: Female

DRUGS (1)
  1. RELVARE [Suspect]
     Active Substance: FLUTICASONE FUROATE\VILANTEROL TRIFENATATE
     Indication: ASTHMA
     Dosage: UNK

REACTIONS (6)
  - Intentional product misuse [Unknown]
  - Dysphonia [Unknown]
  - Therapy cessation [Unknown]
  - Product complaint [Unknown]
  - Drug ineffective [Unknown]
  - Asthmatic crisis [Unknown]
